FAERS Safety Report 8023185-7 (Version None)
Quarter: 2012Q1

REPORT INFORMATION
  Report Type: 
  Country: None (occurrence: None)
  Receive Date: 20120104
  Receipt Date: 20120103
  Transmission Date: 20120608
  Serious: Yes (Death, Hospitalization)
  Sender: FDA-Public Use
  Company Number: US-AMGEN-USASP2011023177

PATIENT
  Age: 59 Year
  Sex: Female
  Weight: 80 kg

DRUGS (14)
  1. ZYVOX [Concomitant]
  2. ACETAMINOPHEN [Concomitant]
     Dosage: 325 MG, Q6H
  3. HYDROCODONE [Concomitant]
     Dosage: 5 MG, Q6H
  4. GEMZAR [Concomitant]
  5. AUGMENTIN '125' [Concomitant]
     Dosage: 875 MG, Q12H
  6. NPLATE [Suspect]
     Indication: PRODUCT USED FOR UNKNOWN INDICATION
     Dosage: 250 MUG, UNK
     Dates: start: 20100505, end: 20101021
  7. AMBIEN [Concomitant]
     Dosage: 10 MG, UNK
  8. COMPAZINE [Concomitant]
     Dosage: 10 MG, UNK
  9. METFORMIN HCL [Concomitant]
     Dosage: 850 MG, UNK
  10. LEVOTHYROXINE SODIUM [Concomitant]
     Dosage: 100 MUG, UNK
  11. HYDROCHLOROTHIAZIDE [Concomitant]
     Dosage: 25 MG, UNK
  12. AVASTIN [Concomitant]
  13. OXYCODONE HCL [Concomitant]
     Dosage: UNK UNK, Q3H
  14. FENTANYL [Concomitant]
     Dosage: 75 MUG, UNK

REACTIONS (8)
  - ANAEMIA [None]
  - HAEMATURIA [None]
  - RENAL FAILURE ACUTE [None]
  - CONSTIPATION [None]
  - BILE DUCT CANCER [None]
  - LIVER ABSCESS [None]
  - ASCITES [None]
  - OEDEMA PERIPHERAL [None]
